FAERS Safety Report 19710043 (Version 6)
Quarter: 2022Q2

REPORT INFORMATION
  Report Type: Spontaneous
  Country: US (occurrence: US)
  Receive Date: 20210816
  Receipt Date: 20220425
  Transmission Date: 20220721
  Serious: Yes (Hospitalization, Other)
  Sender: FDA-Public Use
  Company Number: US-OTSUKA-2021_028149

PATIENT
  Sex: Male
  Weight: 58.97 kg

DRUGS (3)
  1. ABILIFY MAINTENA [Suspect]
     Active Substance: ARIPIPRAZOLE
     Indication: Schizophrenia
     Dosage: 400 MG, EVERY 4 WEEKS
     Route: 030
     Dates: start: 201701
  2. ABILIFY [Suspect]
     Active Substance: ARIPIPRAZOLE
     Indication: Product used for unknown indication
     Dosage: UNK
     Route: 065
  3. DEPAKOTE [Suspect]
     Active Substance: DIVALPROEX SODIUM
     Indication: Product used for unknown indication
     Dosage: 1200 MG, QD
     Route: 065
     Dates: end: 202110

REACTIONS (14)
  - Drug dependence [Not Recovered/Not Resolved]
  - Psychotic behaviour [Unknown]
  - Schizophrenia [Unknown]
  - Drug abuse [Unknown]
  - Behaviour disorder [Not Recovered/Not Resolved]
  - Confusional state [Unknown]
  - Memory impairment [Not Recovered/Not Resolved]
  - Pain [Not Recovered/Not Resolved]
  - Agitation [Unknown]
  - Alopecia [Unknown]
  - Feeling abnormal [Unknown]
  - Therapy interrupted [Unknown]
  - Product dose omission issue [Unknown]
  - Drug ineffective [Unknown]

NARRATIVE: CASE EVENT DATE: 20190101
